FAERS Safety Report 8062753-3 (Version None)
Quarter: 2012Q1

REPORT INFORMATION
  Report Type: 
  Country: None (occurrence: None)
  Receive Date: 20120123
  Receipt Date: 20120118
  Transmission Date: 20120608
  Serious: Yes (Other)
  Sender: FDA-Public Use
  Company Number: US-PFIZER INC-2012015496

PATIENT
  Sex: Female

DRUGS (2)
  1. PROTONIX [Suspect]
     Dosage: UNK
  2. PROCARDIA XL [Suspect]
     Dosage: UNK

REACTIONS (4)
  - GASTRIC CANCER [None]
  - BREAST CANCER [None]
  - EYE DISORDER [None]
  - CARDIAC DISORDER [None]
